FAERS Safety Report 8087487-0 (Version None)
Quarter: 2012Q1

REPORT INFORMATION
  Report Type: 
  Country: None (occurrence: None)
  Receive Date: 20120128
  Receipt Date: 20110524
  Transmission Date: 20120608
  Serious: No
  Sender: FDA-Public Use
  Company Number: US-ABBOTT-11P-163-0728124-00

PATIENT
  Age: 56 Year
  Sex: Male

DRUGS (4)
  1. BENADRYL [Concomitant]
     Indication: PRURITUS
  2. VITAMIN TAB [Concomitant]
     Indication: PRODUCT USED FOR UNKNOWN INDICATION
     Dosage: DAILY
  3. HUMIRA [Suspect]
     Indication: PSORIASIS
     Dates: start: 20100401, end: 20110301
  4. HUMIRA [Suspect]

REACTIONS (1)
  - PSORIASIS [None]
